FAERS Safety Report 8825561 (Version 2)
Quarter: 2012Q4

REPORT INFORMATION
  Report Type: 
  Country: RU (occurrence: RU)
  Receive Date: 20121004
  Receipt Date: 20121109
  Transmission Date: 20130627
  Serious: Yes (Death)
  Sender: FDA-Public Use
  Company Number: RU-BAXTER-2012BAX018260

PATIENT
  Sex: Male

DRUGS (1)
  1. SEPROTIN 500 ME [Suspect]
     Indication: PROTEIN C DEFICIENCY
     Route: 065
     Dates: start: 201209, end: 201209

REACTIONS (1)
  - Cardiac arrest [Fatal]
